FAERS Safety Report 9697366 (Version 1)
Quarter: 2013Q4

REPORT INFORMATION
  Report Type: Spontaneous
  Country: US (occurrence: US)
  Receive Date: 20131120
  Receipt Date: 20131120
  Transmission Date: 20140711
  Serious: No
  Sender: FDA-Public Use
  Company Number: US-009507513-1311USA005397

PATIENT
  Sex: Female
  Weight: 46.71 kg

DRUGS (2)
  1. NEXPLANON [Suspect]
     Dosage: 68 MG/ONE ROD EVERY THREE YEARS
     Route: 059
     Dates: start: 20131104, end: 20131104
  2. NEXPLANON [Suspect]
     Dosage: UNK
     Route: 059
     Dates: start: 20131104

REACTIONS (3)
  - Device difficult to use [Unknown]
  - Product quality control issue [Unknown]
  - No adverse event [Unknown]
